FAERS Safety Report 5451061-2 (Version None)
Quarter: 2007Q3

REPORT INFORMATION
  Report Type: 
  Country: None (occurrence: None)
  Receive Date: 20070913
  Receipt Date: 20070904
  Transmission Date: 20080115
  Serious: Yes (Hospitalization)
  Sender: FDA-Public Use
  Company Number: JP-JNJFOC-20041206952

PATIENT
  Sex: Female
  Weight: 48 kg

DRUGS (27)
  1. REMICADE [Suspect]
     Route: 042
  2. REMICADE [Suspect]
     Route: 042
  3. REMICADE [Suspect]
     Indication: RHEUMATOID ARTHRITIS
     Route: 042
  4. PREDNISOLONE [Suspect]
     Indication: RHEUMATOID ARTHRITIS
     Route: 048
  5. RHEUMATREX [Concomitant]
     Route: 048
  6. RHEUMATREX [Concomitant]
     Route: 048
  7. RHEUMATREX [Concomitant]
     Indication: RHEUMATOID ARTHRITIS
     Route: 048
  8. PSL [Concomitant]
     Route: 048
  9. PSL [Concomitant]
     Route: 048
  10. PSL [Concomitant]
     Route: 048
  11. PSL [Concomitant]
     Indication: RHEUMATOID ARTHRITIS
     Route: 048
  12. VOLTAREN [Concomitant]
     Indication: RHEUMATOID ARTHRITIS
  13. RINGEREAZE [Concomitant]
     Indication: RHEUMATOID ARTHRITIS
     Route: 048
  14. ONON [Concomitant]
     Route: 048
  15. ZADITEN [Concomitant]
     Route: 048
  16. FERRUM [Concomitant]
     Route: 048
  17. FASTIC [Concomitant]
     Route: 048
  18. MUCOSTA [Concomitant]
     Route: 048
  19. METHYCOBAL [Concomitant]
     Route: 048
  20. ONEALPHA [Concomitant]
     Route: 048
  21. THEOLONG [Concomitant]
     Route: 048
  22. FOLIAMIN [Concomitant]
     Route: 048
  23. WANALFA [Concomitant]
     Route: 048
  24. MONTELUKAST SODIUM [Concomitant]
  25. PREDNISOLONE [Concomitant]
     Route: 048
  26. PREDNISOLONE [Concomitant]
     Route: 048
  27. PREDNISOLONE [Concomitant]
     Route: 048

REACTIONS (2)
  - DRUG INEFFECTIVE [None]
  - TUBERCULOUS PLEURISY [None]
